FAERS Safety Report 9881065 (Version 1)
Quarter: 2014Q1

REPORT INFORMATION
  Report Type: Spontaneous
  Country: US (occurrence: US)
  Receive Date: 20140207
  Receipt Date: 20140207
  Transmission Date: 20141002
  Serious: Yes (Death)
  Sender: FDA-Public Use
  Company Number: US-ASTELLAS-2014US001280

PATIENT
  Age: 79 Year
  Sex: Female

DRUGS (2)
  1. PROGRAF [Suspect]
     Indication: RENAL TRANSPLANT
     Dosage: 0.5 MG, BID
     Route: 048
     Dates: start: 20071127
  2. PROGRAF [Suspect]
     Dosage: 1 MG, BID
     Route: 048
     Dates: start: 20071127

REACTIONS (1)
  - Renal failure [Fatal]
